FAERS Safety Report 14670671 (Version 3)
Quarter: 2018Q2

REPORT INFORMATION
  Report Type: Spontaneous
  Country: IT (occurrence: IT)
  Receive Date: 20180322
  Receipt Date: 20180423
  Transmission Date: 20180711
  Serious: Yes (Other)
  Sender: FDA-Public Use
  Company Number: IT-PFIZER INC-2011258562

PATIENT
  Age: 45 Year
  Sex: Female

DRUGS (4)
  1. LORAZEPAM. [Suspect]
     Active Substance: LORAZEPAM
     Dosage: 1 DF, DAILY (1 UNIT DOSE DAILY)
     Route: 048
     Dates: start: 20100826, end: 20110825
  2. ATENOLOL. [Suspect]
     Active Substance: ATENOLOL
     Dosage: 50 MG, DAILY
     Route: 048
     Dates: start: 20100826, end: 20110825
  3. EFEXOR [Suspect]
     Active Substance: VENLAFAXINE HYDROCHLORIDE
     Dosage: 1 DF, DAILY (1 UNIT DOSE DAILY)
     Route: 048
     Dates: start: 20100826, end: 20110825
  4. ZYPREXA [Suspect]
     Active Substance: OLANZAPINE
     Dosage: 1 DF, DAILY (1 UNIT DOSE DAILY)
     Route: 048
     Dates: start: 20100826, end: 20110825

REACTIONS (1)
  - Syncope [Recovering/Resolving]

NARRATIVE: CASE EVENT DATE: 20110824
